FAERS Safety Report 9561364 (Version 1)
Quarter: 2013Q3

REPORT INFORMATION
  Report Type: Spontaneous
  Country: US (occurrence: US)
  Receive Date: 20130927
  Receipt Date: 20130927
  Transmission Date: 20140515
  Serious: No
  Sender: FDA-Public Use
  Company Number: US-BIOGENIDEC-2013BI058416

PATIENT
  Sex: Female

DRUGS (8)
  1. TECFIDERA [Suspect]
     Indication: MULTIPLE SCLEROSIS
     Dates: start: 20130530
  2. PREMARIN [Concomitant]
  3. ZOLOFT [Concomitant]
  4. ENABLEX [Concomitant]
  5. AMERGE [Concomitant]
  6. VITAMIN B-12 [Concomitant]
  7. TRIAMTERENE/HCTZ [Concomitant]
  8. ELMIRON [Concomitant]

REACTIONS (16)
  - Pyrexia [Recovered/Resolved]
  - Muscle spasms [Not Recovered/Not Resolved]
  - Dizziness [Not Recovered/Not Resolved]
  - Headache [Not Recovered/Not Resolved]
  - Urine odour abnormal [Not Recovered/Not Resolved]
  - Asthenia [Not Recovered/Not Resolved]
  - Fatigue [Unknown]
  - Lethargy [Unknown]
  - Constipation [Unknown]
  - Skin disorder [Unknown]
  - Cold sweat [Unknown]
  - Hyperhidrosis [Unknown]
  - Rash [Unknown]
  - Flushing [Not Recovered/Not Resolved]
  - Nausea [Not Recovered/Not Resolved]
  - Vomiting [Recovered/Resolved]
